FAERS Safety Report 14925635 (Version 1)
Quarter: 2018Q2

REPORT INFORMATION
  Report Type: Spontaneous
  Country: US (occurrence: US)
  Receive Date: 20180522
  Receipt Date: 20180522
  Transmission Date: 20180711
  Serious: No
  Sender: FDA-Public Use
  Company Number: US-AMAG PHARMACEUTICALS, INC.-AMAG201800765

PATIENT

DRUGS (2)
  1. INTRAROSA [Suspect]
     Active Substance: PRASTERONE
     Indication: VULVOVAGINAL DRYNESS
  2. INTRAROSA [Suspect]
     Active Substance: PRASTERONE
     Indication: BLADDER PROLAPSE
     Dosage: 6.5 MG, QHS
     Route: 067
     Dates: start: 20180217, end: 20180217

REACTIONS (2)
  - Off label use [Unknown]
  - Vulvovaginal burning sensation [Recovered/Resolved]

NARRATIVE: CASE EVENT DATE: 20180217
